FAERS Safety Report 23055085 (Version 1)
Quarter: 2023Q4

REPORT INFORMATION
  Report Type: Spontaneous
  Country: US (occurrence: None)
  Receive Date: 20231010
  Receipt Date: 20231010
  Transmission Date: 20240110
  Serious: Yes (Hospitalization)
  Sender: FDA-Public Use
  Company Number: None

PATIENT
  Sex: Female
  Weight: 93 kg

DRUGS (21)
  1. CYCLOPHOSPHAMIDE [Suspect]
     Active Substance: CYCLOPHOSPHAMIDE
     Dates: end: 20230929
  2. DACTINOMYCIN [Suspect]
     Active Substance: DACTINOMYCIN
     Dates: end: 20230929
  3. VINCRISTINE SULFATE [Suspect]
     Active Substance: VINCRISTINE SULFATE
     Dates: end: 20230921
  4. VINORELBINE TARTRATE [Suspect]
     Active Substance: VINORELBINE TARTRATE
     Dates: end: 20230929
  5. CHLORHEXIDINE [Concomitant]
     Active Substance: CHLORHEXIDINE\CHLORHEXIDINE GLUCONATE
  6. HYDROXYZINE HYDROCHLORIDE [Concomitant]
     Active Substance: HYDROXYZINE HYDROCHLORIDE
  7. SERTRALINE [Concomitant]
     Active Substance: SERTRALINE HYDROCHLORIDE
  8. ALBUTEROL SULFATE [Concomitant]
     Active Substance: ALBUTEROL SULFATE
  9. BENZOYL PEROXIDE [Concomitant]
     Active Substance: BENZOYL PEROXIDE
  10. CALCIUM CARBONATE [Concomitant]
     Active Substance: CALCIUM CARBONATE
  11. CLONIDINE [Concomitant]
     Active Substance: CLONIDINE
  12. DOCUSATE SODIUM [Concomitant]
     Active Substance: DOCUSATE SODIUM
  13. FUROSEMIDE [Concomitant]
     Active Substance: FUROSEMIDE
  14. HEPARIN [Concomitant]
     Active Substance: HEPARIN SODIUM
  15. LACTULOSE [Concomitant]
     Active Substance: LACTULOSE
  16. OLANZAPINE [Concomitant]
     Active Substance: OLANZAPINE
  17. ONDANSETRON [Concomitant]
     Active Substance: ONDANSETRON
  18. POLYETHYLENE GLYCOL [Concomitant]
     Active Substance: POLYETHYLENE GLYCOL
  19. PREDNISONE [Concomitant]
     Active Substance: PREDNISONE
  20. SCOPOLAMINE [Concomitant]
     Active Substance: SCOPOLAMINE
  21. SENNOSIDES [Concomitant]
     Active Substance: SENNOSIDES

REACTIONS (4)
  - Vascular device infection [None]
  - Septic shock [None]
  - Neutropenia [None]
  - Hypotension [None]

NARRATIVE: CASE EVENT DATE: 20231005
